FAERS Safety Report 9980799 (Version 1)
Quarter: 2014Q1

REPORT INFORMATION
  Report Type: Report from Study
  Country: DE (occurrence: DE)
  Receive Date: 20140307
  Receipt Date: 20140307
  Transmission Date: 20141002
  Serious: Yes (Hospitalization, Other)
  Sender: FDA-Public Use
  Company Number: DE-ROCHE-1356257

PATIENT
  Age: 77 Year
  Sex: Female

DRUGS (14)
  1. RITUXIMAB [Suspect]
     Indication: RHEUMATOID ARTHRITIS
     Route: 065
     Dates: start: 20090909
  2. RITUXIMAB [Suspect]
     Route: 065
     Dates: start: 20101026
  3. RITUXIMAB [Suspect]
     Route: 065
     Dates: start: 20111122
  4. RITUXIMAB [Suspect]
     Route: 065
     Dates: start: 20110122
  5. RITUXIMAB [Suspect]
     Route: 065
     Dates: start: 20110612
  6. METHOTREXATE [Suspect]
     Indication: PRODUCT USED FOR UNKNOWN INDICATION
     Route: 065
     Dates: start: 20090119
  7. METHOTREXATE [Suspect]
     Route: 065
     Dates: start: 20090624
  8. METHOTREXATE [Suspect]
     Route: 065
     Dates: start: 20090909
  9. METHOTREXATE [Suspect]
     Route: 065
     Dates: start: 20100908
  10. METHOTREXATE [Suspect]
     Route: 065
     Dates: start: 20111122
  11. METHOTREXATE [Suspect]
     Route: 065
     Dates: start: 20120321
  12. METHOTREXATE [Suspect]
     Route: 065
     Dates: start: 20120626
  13. METHOTREXATE [Suspect]
     Route: 065
     Dates: start: 20121219
  14. METHOTREXATE [Suspect]
     Route: 065
     Dates: start: 20130627

REACTIONS (2)
  - Lobar pneumonia [Unknown]
  - Transient ischaemic attack [Unknown]
